FAERS Safety Report 21795945 (Version 1)
Quarter: 2022Q4

REPORT INFORMATION
  Report Type: Spontaneous
  Country: US (occurrence: US)
  Receive Date: 20221229
  Receipt Date: 20221229
  Transmission Date: 20230113
  Serious: No
  Sender: FDA-Public Use
  Company Number: US-Fresenius Medical Care Renal Therapies Group-FMC-2212-001958

PATIENT
  Sex: Female

DRUGS (1)
  1. DELFLEX [Suspect]
     Active Substance: CALCIUM CHLORIDE\DEXTROSE\MAGNESIUM CHLORIDE\SODIUM CHLORIDE\SODIUM LACTATE
     Indication: End stage renal disease
     Dosage: FILLS = 6; FILL VOLUME = 2400ML; FILL TIME = 0HR15MINS; DWELL TIME = 1HR 02; DRAIN TIME = 0HRS 24MIN
     Route: 033

REACTIONS (1)
  - Malaise [Not Recovered/Not Resolved]
